FAERS Safety Report 5996579-9 (Version None)
Quarter: 2008Q4

REPORT INFORMATION
  Report Type: 
  Country: None (occurrence: None)
  Receive Date: 20081212
  Receipt Date: 20081020
  Transmission Date: 20090506
  Serious: No
  Sender: FDA-Public Use
  Company Number: US-ABBOTT-08P-163-0482798-00

PATIENT
  Sex: Male
  Weight: 73.548 kg

DRUGS (5)
  1. HUMIRA [Suspect]
     Indication: PSORIASIS
     Route: 058
     Dates: start: 20080702
  2. WARFARIN SODIUM [Interacting]
     Indication: DRUG USE FOR UNKNOWN INDICATION
     Route: 048
  3. ENSURE [Concomitant]
     Indication: MEDICAL DIET
     Route: 048
  4. CENTRUM SILVER [Concomitant]
     Indication: DRUG USE FOR UNKNOWN INDICATION
     Route: 048
  5. CORTISONE ACETATE TAB [Concomitant]
     Indication: ACNE
     Route: 061

REACTIONS (7)
  - ACNE [None]
  - DRUG INTERACTION [None]
  - INCREASED TENDENCY TO BRUISE [None]
  - PAIN OF SKIN [None]
  - SKIN LACERATION [None]
  - SKIN PAPILLOMA [None]
  - WOUND HAEMORRHAGE [None]
